FAERS Safety Report 8576083-4 (Version None)
Quarter: 2012Q3

REPORT INFORMATION
  Report Type: 
  Country: None (occurrence: None)
  Receive Date: 20120725
  Receipt Date: 20120710
  Transmission Date: 20120928
  Serious: Yes (Hospitalization)
  Sender: FDA-Public Use
  Company Number: TPA2012A04831

PATIENT
  Age: 79 Year
  Sex: Female
  Weight: 65.7716 kg

DRUGS (5)
  1. ACTOS [Suspect]
     Indication: TYPE 2 DIABETES MELLITUS
  2. AMARYL [Suspect]
     Indication: TYPE 2 DIABETES MELLITUS
     Dosage: 2 MG, 1 IN 1 D
     Dates: start: 20120621, end: 20120622
  3. DIOVAN [Concomitant]
  4. JANUVIA [Suspect]
     Indication: TYPE 2 DIABETES MELLITUS
  5. TRICOR [Concomitant]

REACTIONS (7)
  - NAUSEA [None]
  - BLOOD GLUCOSE DECREASED [None]
  - MALAISE [None]
  - HEART RATE INCREASED [None]
  - HEADACHE [None]
  - COORDINATION ABNORMAL [None]
  - CORONARY ARTERIAL STENT INSERTION [None]
